FAERS Safety Report 17776434 (Version 2)
Quarter: 2020Q3

REPORT INFORMATION
  Report Type: Report from Study
  Country: US (occurrence: US)
  Receive Date: 20200513
  Receipt Date: 20200807
  Transmission Date: 20201102
  Serious: No
  Sender: FDA-Public Use
  Company Number: US-ACADIA PHARMACEUTICALS INC.-ACA-2019-013588

PATIENT
  Age: 65 Year
  Sex: Male

DRUGS (1)
  1. NUPLAZID [Suspect]
     Active Substance: PIMAVANSERIN TARTRATE
     Indication: PARKINSON^S DISEASE
     Dosage: 34 MG, QD
     Route: 048
     Dates: start: 201901

REACTIONS (9)
  - Hallucination [Unknown]
  - Dementia [Unknown]
  - Ill-defined disorder [Unknown]
  - Fall [Unknown]
  - Dysgraphia [Unknown]
  - Incoherent [Unknown]
  - Abnormal behaviour [Unknown]
  - Schizophrenia [Unknown]
  - Condition aggravated [Unknown]

NARRATIVE: CASE EVENT DATE: 201905
